FAERS Safety Report 4454366-7 (Version None)
Quarter: 2004Q3

REPORT INFORMATION
  Report Type: 
  Country: None (occurrence: None)
  Receive Date: 20040921
  Receipt Date: 20040909
  Transmission Date: 20050211
  Serious: Yes (Other)
  Sender: FDA-Public Use
  Company Number: US-JNJFOC-20040903363

PATIENT
  Age: 51 Year
  Sex: Female

DRUGS (2)
  1. REOPRO [Suspect]
     Route: 042
  2. REOPRO [Suspect]
     Route: 042

REACTIONS (2)
  - ACCIDENTAL OVERDOSE [None]
  - MEDICATION ERROR [None]
